FAERS Safety Report 9997261 (Version 1)
Quarter: 2014Q1

REPORT INFORMATION
  Report Type: Spontaneous
  Country: US (occurrence: US)
  Receive Date: 20140311
  Receipt Date: 20140311
  Transmission Date: 20141002
  Serious: No
  Sender: FDA-Public Use
  Company Number: US-GLAXOSMITHKLINE-A1026476A

PATIENT
  Age: 55 Year
  Sex: Female

DRUGS (3)
  1. NICOTINE GUM [Suspect]
     Indication: EX-TOBACCO USER
     Route: 065
  2. NICOTINE PATCH [Suspect]
     Indication: EX-TOBACCO USER
     Route: 065
  3. WELLBUTRIN [Suspect]
     Indication: EX-TOBACCO USER
     Route: 065

REACTIONS (1)
  - Drug ineffective [Unknown]
